FAERS Safety Report 4570973-5 (Version None)
Quarter: 2005Q1

REPORT INFORMATION
  Report Type: 
  Country: None (occurrence: None)
  Receive Date: 20050204
  Receipt Date: 20041014
  Transmission Date: 20050727
  Serious: Yes (Hospitalization, Disabling)
  Sender: FDA-Public Use
  Company Number: DE-MERCK-0410DEU00478

PATIENT
  Age: 48 Year
  Sex: Male
  Weight: 77 kg

DRUGS (1)
  1. VIOXX [Suspect]
     Indication: OSTEOARTHRITIS
     Route: 048
     Dates: start: 20000517

REACTIONS (7)
  - BLOOD PRESSURE INCREASED [None]
  - DEPRESSION [None]
  - DISTURBANCE IN ATTENTION [None]
  - DIZZINESS [None]
  - ISCHAEMIC CEREBRAL INFARCTION [None]
  - LACUNAR INFARCTION [None]
  - TINNITUS [None]
